FAERS Safety Report 5852109-3 (Version None)
Quarter: 2008Q3

REPORT INFORMATION
  Report Type: 
  Country: None (occurrence: None)
  Receive Date: 20080821
  Receipt Date: 20080812
  Transmission Date: 20090109
  Serious: Yes (Hospitalization)
  Sender: FDA-Public Use
  Company Number: US-JNJFOC-20080803843

PATIENT
  Sex: Female
  Weight: 76.2 kg

DRUGS (6)
  1. DURAGESIC-100 [Suspect]
     Route: 062
  2. DURAGESIC-100 [Suspect]
     Indication: PAIN
     Route: 062
  3. DIOVAN [Concomitant]
     Indication: BLOOD PRESSURE
     Route: 048
  4. HYDROCHLOROTHIAZIDE [Concomitant]
     Indication: BLOOD PRESSURE
     Route: 048
  5. LORTAB [Concomitant]
     Indication: PAIN
     Route: 048
  6. SOMA [Concomitant]
     Indication: PAIN
     Route: 048

REACTIONS (2)
  - BACK DISORDER [None]
  - WRONG TECHNIQUE IN DRUG USAGE PROCESS [None]
